FAERS Safety Report 12441867 (Version 2)
Quarter: 2016Q2

REPORT INFORMATION
  Report Type: Report from Study
  Country: IT (occurrence: IT)
  Receive Date: 20160607
  Receipt Date: 20160621
  Transmission Date: 20160815
  Serious: Yes (Hospitalization)
  Sender: FDA-Public Use
  Company Number: IT-TEVA-664125ACC

PATIENT
  Age: 83 Year
  Sex: Male

DRUGS (23)
  1. LONQUEX [Suspect]
     Active Substance: LIPEGFILGRASTIM
     Route: 058
     Dates: start: 20160505, end: 20160505
  2. MYOCET [Suspect]
     Active Substance: DOXORUBICIN
     Dates: start: 20160504
  3. ENDOXAN [Suspect]
     Active Substance: CYCLOPHOSPHAMIDE
     Indication: CHEMOTHERAPY
     Route: 042
     Dates: start: 20160406
  4. METHYLPREDNISOLONE. [Concomitant]
     Active Substance: METHYLPREDNISOLONE
     Dates: start: 20160504
  5. ENDOXAN [Suspect]
     Active Substance: CYCLOPHOSPHAMIDE
     Dates: start: 20160504
  6. MYCOSTATIN [Concomitant]
     Active Substance: NYSTATIN
  7. CARDURA [Concomitant]
     Active Substance: DOXAZOSIN MESYLATE
  8. LASIX [Concomitant]
     Active Substance: FUROSEMIDE
  9. MESNA. [Concomitant]
     Active Substance: MESNA
     Indication: CHEMOTHERAPY
     Dates: start: 20160406
  10. RITUXIMAB [Concomitant]
     Active Substance: RITUXIMAB
     Dates: start: 20160504
  11. DELTACORTENE [Concomitant]
     Active Substance: PREDNISONE
     Indication: PROPHYLAXIS
     Dosage: 100 MILLIGRAM DAILY;
     Route: 048
     Dates: start: 20160505, end: 20160508
  12. MESNA. [Concomitant]
     Active Substance: MESNA
     Dates: start: 20160504
  13. RITUXIMAB [Concomitant]
     Active Substance: RITUXIMAB
     Indication: CHEMOTHERAPY
     Dates: start: 20160412
  14. BACTRIM [Concomitant]
     Active Substance: SULFAMETHOXAZOLE\TRIMETHOPRIM
     Indication: PROPHYLAXIS
     Dosage: 1 DOSAGE FORMS DAILY;
     Route: 048
     Dates: start: 20160413
  15. ACYCLOVIR. [Concomitant]
     Active Substance: ACYCLOVIR
     Indication: PROPHYLAXIS
     Dosage: 400 MILLIGRAM DAILY;
     Route: 048
     Dates: start: 20160413
  16. LONQUEX [Suspect]
     Active Substance: LIPEGFILGRASTIM
     Indication: NEUTROPENIA
     Dosage: 6 MILLIGRAM DAILY;
     Route: 058
     Dates: start: 20160408, end: 20160408
  17. MYOCET [Suspect]
     Active Substance: DOXORUBICIN
     Indication: CHEMOTHERAPY
     Route: 042
     Dates: start: 20160406
  18. ALLOPURINOL. [Concomitant]
     Active Substance: ALLOPURINOL
     Indication: PROPHYLAXIS
     Route: 048
     Dates: start: 20160413
  19. METHYLPREDNISOLONE. [Concomitant]
     Active Substance: METHYLPREDNISOLONE
     Indication: CHEMOTHERAPY
     Dates: start: 20160406
  20. VINCRISTINE TEVA [Suspect]
     Active Substance: VINCRISTINE
     Indication: CHEMOTHERAPY
     Route: 042
     Dates: start: 20160406
  21. ATENOLOL. [Concomitant]
     Active Substance: ATENOLOL
  22. VINCRISTINE TEVA [Suspect]
     Active Substance: VINCRISTINE
     Dates: start: 20160504
  23. LAMIVUDINE. [Concomitant]
     Active Substance: LAMIVUDINE
     Indication: PROPHYLAXIS
     Dosage: 100 MILLIGRAM DAILY;
     Route: 048
     Dates: start: 20160413

REACTIONS (1)
  - Pneumonitis [Not Recovered/Not Resolved]

NARRATIVE: CASE EVENT DATE: 20160512
